FAERS Safety Report 6304549-6 (Version None)
Quarter: 2009Q3

REPORT INFORMATION
  Report Type: 
  Country: None (occurrence: None)
  Receive Date: 20090806
  Receipt Date: 20090727
  Transmission Date: 20100115
  Serious: Yes (Other)
  Sender: FDA-Public Use
  Company Number: TRP_06104_2009

PATIENT
  Sex: Female

DRUGS (3)
  1. INFERGEN [Suspect]
     Indication: HEPATITIS C
     Dosage: 9 UG QD SUBCUTANEOUS
     Route: 058
     Dates: start: 20090213, end: 20090101
  2. RIBAPAK 200 MG (NOT SPECIFIED) [Suspect]
     Indication: HEPATITIS C
     Dosage: 600 MG BID ORAL
     Route: 048
     Dates: start: 20090213, end: 20090101
  3. PROZAC /00724401/ [Concomitant]

REACTIONS (18)
  - ACTIVITIES OF DAILY LIVING IMPAIRED [None]
  - ARTHRALGIA [None]
  - ASTHENIA [None]
  - BACK PAIN [None]
  - CHEST PAIN [None]
  - DYSGEUSIA [None]
  - DYSPNOEA [None]
  - HYPERSOMNIA [None]
  - MEMORY IMPAIRMENT [None]
  - MUSCLE TWITCHING [None]
  - MUSCULOSKELETAL CHEST PAIN [None]
  - NAUSEA [None]
  - NERVE INJURY [None]
  - PAIN [None]
  - PERSONALITY CHANGE [None]
  - SUICIDAL IDEATION [None]
  - UPPER RESPIRATORY TRACT INFECTION [None]
  - VISUAL IMPAIRMENT [None]
